FAERS Safety Report 5349311-6 (Version None)
Quarter: 2007Q2

REPORT INFORMATION
  Report Type: 
  Country: None (occurrence: None)
  Receive Date: 20070607
  Receipt Date: 20070601
  Transmission Date: 20071010
  Serious: Yes (Life-Threatening)
  Sender: FDA-Public Use
  Company Number: B0473424A

PATIENT
  Age: 24 Year
  Sex: Female

DRUGS (4)
  1. PAXIL [Suspect]
     Indication: DEPRESSION
     Dosage: 30MG PER DAY
     Route: 048
     Dates: start: 20060710, end: 20070320
  2. PAXIL [Suspect]
     Dosage: 30MG PER DAY
     Route: 048
     Dates: end: 20070320
  3. UNSPECIFIED MEDICATION [Suspect]
     Route: 065
  4. BENZODIAZEPINE [Concomitant]

REACTIONS (3)
  - ABNORMAL BEHAVIOUR [None]
  - OVERDOSE [None]
  - SUICIDE ATTEMPT [None]
